FAERS Safety Report 8974319 (Version 1)
Quarter: 2012Q4

REPORT INFORMATION
  Report Type: 
  Country: US (occurrence: US)
  Receive Date: 20121219
  Receipt Date: 20121219
  Transmission Date: 20130627
  Serious: No
  Sender: FDA-Public Use
  Company Number: US-AMGEN-USASP2012054216

PATIENT
  Age: 70 Year
  Sex: Female
  Weight: 86.62 kg

DRUGS (1)
  1. PROLIA [Suspect]
     Indication: OSTEOPOROSIS
     Dosage: 60 mg, one time dose
     Route: 058
     Dates: start: 20120524

REACTIONS (4)
  - Groin abscess [Recovered/Resolved]
  - Inguinal hernia [Recovered/Resolved]
  - Skin infection [Recovered/Resolved]
  - Rash [Recovered/Resolved]
